FAERS Safety Report 9235404 (Version 1)
Quarter: 2013Q1

REPORT INFORMATION
  Report Type: Spontaneous
  Country: US (occurrence: None)
  Receive Date: 20121031
  Receipt Date: 20121031
  Transmission Date: 20140127
  Serious: Yes (Other)
  Sender: FDA-Public Use
  Company Number: PHEH2012US015789

PATIENT
  Age: 62 Year
  Sex: Female
  Weight: 63 kg

DRUGS (12)
  1. GILENYA [Suspect]
     Route: 048
  2. VICODIN (HYDROCODONE BITARTRATE, PARACETAMOL) [Concomitant]
  3. SPIRONOLACTONE (SPIRONOLACTONE) [Concomitant]
  4. OXYBUTYNIN (OXYBUTYNIN) [Concomitant]
  5. BACLOFEN (BACLOFEN) [Concomitant]
  6. RITALIN (METHYLPHENIDATE HYDROCHLORIDE) [Concomitant]
  7. NEURONTIN (GABAPENTIN) [Concomitant]
  8. LOVASTATIN (LOVASTATIN) [Concomitant]
  9. LEVOTHYROXINE (LELVOTHYROXINE) [Concomitant]
  10. VITAMIN D (ERGOCALCIFEROL) [Concomitant]
  11. OMEPRAZOLE (OMEPRAZOLE) [Concomitant]
  12. CIPRO (CIPROFLOXACIN HYDROCHLORIDE) [Concomitant]

REACTIONS (2)
  - Cystitis [None]
  - White blood cell count decreased [None]
